FAERS Safety Report 5626348-0 (Version None)
Quarter: 2008Q1

REPORT INFORMATION
  Report Type: 
  Country: None (occurrence: None)
  Receive Date: 20080214
  Receipt Date: 20080207
  Transmission Date: 20080703
  Serious: Yes (Other)
  Sender: FDA-Public Use
  Company Number: HU-AVENTIS-200811310GDDC

PATIENT
  Sex: Male

DRUGS (2)
  1. ARAVA [Suspect]
     Dosage: DOSE: UNK
  2. METHOTREXATE [Concomitant]
     Dosage: DOSE: UNK

REACTIONS (2)
  - RENAL IMPAIRMENT [None]
  - TRANSAMINASES INCREASED [None]
